FAERS Safety Report 14773583 (Version 2)
Quarter: 2018Q2

REPORT INFORMATION
  Report Type: Spontaneous
  Country: FR (occurrence: FR)
  Receive Date: 20180418
  Receipt Date: 20180418
  Transmission Date: 20180711
  Serious: Yes (Death, Hospitalization, Other)
  Sender: FDA-Public Use
  Company Number: PHHY2017FR202330

PATIENT
  Age: 70 Year
  Sex: Male

DRUGS (6)
  1. ROXITHROMYCIN [Suspect]
     Active Substance: ROXITHROMYCIN
     Indication: LUNG DISORDER
     Dosage: 2 DF, UNK (2 DAYS)
     Route: 048
     Dates: start: 20170924, end: 20170924
  2. NEULASTA [Suspect]
     Active Substance: PEGFILGRASTIM
     Indication: NEUTROPENIA
     Dosage: UNK
     Route: 058
  3. FLUCONAZOLE. [Suspect]
     Active Substance: FLUCONAZOLE
     Indication: ORAL INFECTION
     Dosage: UNK
     Route: 048
     Dates: start: 20170925, end: 20170928
  4. DOCETAXEL. [Suspect]
     Active Substance: DOCETAXEL
     Indication: LUNG NEOPLASM MALIGNANT
     Dosage: UNK
     Route: 042
     Dates: start: 20170918, end: 20170918
  5. LEVOFLOXACIN. [Suspect]
     Active Substance: LEVOFLOXACIN
     Indication: LUNG DISORDER
     Dosage: 500 MG, BID (1000 MG, QD)
     Route: 048
     Dates: start: 20170904, end: 20170910
  6. ONDANSETRON [Suspect]
     Active Substance: ONDANSETRON
     Indication: PROPHYLAXIS OF NAUSEA AND VOMITING
     Dosage: UNK
     Route: 048

REACTIONS (1)
  - Toxic epidermal necrolysis [Fatal]

NARRATIVE: CASE EVENT DATE: 20170930
